FAERS Safety Report 10654379 (Version 1)
Quarter: 2014Q4

REPORT INFORMATION
  Report Type: Other
  Country: IT (occurrence: IT)
  Receive Date: 20141216
  Receipt Date: 20141216
  Transmission Date: 20150529
  Serious: Yes (Hospitalization)
  Sender: FDA-Public Use
  Company Number: IT-SUN PHARMACEUTICAL INDUSTRIES LTD-2014SUN02830

PATIENT
  Age: 24 Year
  Sex: Male

DRUGS (5)
  1. CLONAZEPAM. [Concomitant]
     Active Substance: CLONAZEPAM
  2. OLANZAPINE 5 MG TABLETS [Suspect]
     Active Substance: OLANZAPINE
     Indication: INTENTIONAL SELF-INJURY
     Dosage: UNK
     Route: 065
     Dates: start: 20140730, end: 20140730
  3. TOLEP [Suspect]
     Active Substance: OXCARBAZEPINE
     Indication: INTENTIONAL SELF-INJURY
     Route: 065
     Dates: start: 20140730, end: 20140730
  4. OXCARBAMAZEPINE [Concomitant]
     Active Substance: OXCARBAZEPINE
  5. PLAUNAC 10 MG [Suspect]
     Active Substance: OLMESARTAN MEDOXOMIL
     Indication: INTENTIONAL SELF-INJURY
     Route: 065
     Dates: start: 20140730, end: 20140730

REACTIONS (3)
  - Miosis [Unknown]
  - Intentional overdose [Unknown]
  - Coma [Unknown]

NARRATIVE: CASE EVENT DATE: 20140730
